FAERS Safety Report 8085644-0 (Version None)
Quarter: 2012Q1

REPORT INFORMATION
  Report Type: 
  Country: None (occurrence: None)
  Receive Date: 20120128
  Receipt Date: 20110401
  Transmission Date: 20120608
  Serious: No
  Sender: FDA-Public Use
  Company Number: US-ABBOTT-11P-163-0716457-00

PATIENT
  Sex: Female
  Weight: 120.31 kg

DRUGS (5)
  1. AVAPRO [Concomitant]
     Indication: HYPERTENSION
  2. ZYRTEC [Concomitant]
     Indication: HYPERSENSITIVITY
  3. SPIRIVA [Concomitant]
     Indication: CHRONIC OBSTRUCTIVE PULMONARY DISEASE
  4. HUMIRA [Suspect]
     Indication: PRODUCT USED FOR UNKNOWN INDICATION
     Route: 058
     Dates: start: 20110121
  5. VITAMIN TAB [Concomitant]
     Indication: VITAMIN SUPPLEMENTATION

REACTIONS (1)
  - NODULE [None]
